FAERS Safety Report 10236869 (Version 2)
Quarter: 2014Q2

REPORT INFORMATION
  Report Type: Spontaneous
  Country: JP (occurrence: JP)
  Receive Date: 20140613
  Receipt Date: 20140620
  Transmission Date: 20141212
  Serious: No
  Sender: FDA-Public Use
  Company Number: JP-PFIZER INC-2014161932

PATIENT
  Sex: Female

DRUGS (1)
  1. GABAPEN [Suspect]
     Indication: PAIN
     Route: 048

REACTIONS (3)
  - Somnolence [Unknown]
  - Abdominal pain [Unknown]
  - Axillary pain [Unknown]
